FAERS Safety Report 13925273 (Version 2)
Quarter: 2017Q3

REPORT INFORMATION
  Report Type: Report from Study
  Country: NL (occurrence: NL)
  Receive Date: 20170831
  Receipt Date: 20170921
  Transmission Date: 20171127
  Serious: Yes (Hospitalization, Other)
  Sender: FDA-Public Use
  Company Number: NL-BIOGEN-2017BI00450816

PATIENT
  Age: 51 Year
  Sex: Female

DRUGS (3)
  1. MIRABEGRON [Concomitant]
     Active Substance: MIRABEGRON
     Indication: BLADDER DISORDER
     Route: 048
     Dates: start: 2016
  2. LISINOPRIL. [Concomitant]
     Active Substance: LISINOPRIL
     Indication: HYPERTENSION
     Route: 065
     Dates: start: 2017
  3. FAMPYRA [Suspect]
     Active Substance: DALFAMPRIDINE
     Indication: MULTIPLE SCLEROSIS
     Route: 048
     Dates: start: 20170307, end: 20170808

REACTIONS (1)
  - Epilepsy [Recovered/Resolved]

NARRATIVE: CASE EVENT DATE: 20170808
